FAERS Safety Report 5192774-X (Version None)
Quarter: 2006Q4

REPORT INFORMATION
  Report Type: 
  Country: None (occurrence: None)
  Receive Date: 20061228
  Receipt Date: 20061220
  Transmission Date: 20070319
  Serious: Yes (Hospitalization)
  Sender: FDA-Public Use
  Company Number: FR-BAYER-200611211BFR

PATIENT
  Age: 63 Year
  Sex: Male
  Weight: 83 kg

DRUGS (2)
  1. CIPROFLOXACIN [Suspect]
     Indication: LYMPHADENITIS
     Dosage: TOTAL DAILY DOSE: 1 G  UNIT DOSE: 500 MG
     Route: 048
     Dates: start: 20061116, end: 20061121
  2. AUGMENTIN '125' [Suspect]
     Indication: LYMPHADENITIS
     Dosage: TOTAL DAILY DOSE: 3 G  UNIT DOSE: 1 G
     Route: 048
     Dates: start: 20061116, end: 20061120

REACTIONS (2)
  - PURPURA [None]
  - RASH MORBILLIFORM [None]
